FAERS Safety Report 4497802-2 (Version None)
Quarter: 2004Q4

REPORT INFORMATION
  Report Type: 
  Country: None (occurrence: None)
  Receive Date: 20041104
  Receipt Date: 20041022
  Transmission Date: 20050328
  Serious: Yes (Hospitalization)
  Sender: FDA-Public Use
  Company Number: 2004EU001908

PATIENT
  Age: 54 Year
  Sex: Male
  Weight: 48 kg

DRUGS (7)
  1. FK506        (TACROLIMUS) [Suspect]
     Indication: LIVER TRANSPLANT
     Dosage: ORAL
     Route: 048
     Dates: start: 20040705, end: 20040910
  2. PREDNISOLONE [Suspect]
     Indication: LIVER TRANSPLANT
     Dosage: ORAL
     Route: 048
  3. ISONIAZID [Concomitant]
  4. PYRIDOXINE (PYRIDOXINE) [Concomitant]
  5. AZATHIOPRINE [Concomitant]
  6. DIDRONEL [Concomitant]
  7. OMEPRAZOLE [Concomitant]

REACTIONS (4)
  - ABNORMAL BEHAVIOUR [None]
  - CONFUSIONAL STATE [None]
  - HALLUCINATION [None]
  - NEUROTOXICITY [None]
